FAERS Safety Report 16622982 (Version 1)
Quarter: 2019Q3

REPORT INFORMATION
  Report Type: Spontaneous
  Country: IE (occurrence: IE)
  Receive Date: 20190723
  Receipt Date: 20190723
  Transmission Date: 20191004
  Serious: Yes (Other)
  Sender: FDA-Public Use
  Company Number: IE-TASMAN PHARMA, INC.-2019TSM00062

PATIENT
  Age: 56 Year
  Sex: Female

DRUGS (6)
  1. CLOZAPINE. [Suspect]
     Active Substance: CLOZAPINE
     Dosage: 125 TO 150 MG, 1X/DAY
     Route: 065
     Dates: start: 2015, end: 2015
  2. CLOZAPINE. [Suspect]
     Active Substance: CLOZAPINE
     Dosage: 125 MG IN THE MORNING AND 150 MG AT NIGHT
     Route: 065
     Dates: start: 2013
  3. CLOZAPINE. [Suspect]
     Active Substance: CLOZAPINE
     Indication: SCHIZOAFFECTIVE DISORDER
     Dosage: UNK
     Route: 065
     Dates: start: 201310, end: 2013
  4. CLOZAPINE. [Suspect]
     Active Substance: CLOZAPINE
     Dosage: 50 MG IN THE MORNING AND 125 MG AT NIGHT
     Dates: start: 201511
  5. CLOZAPINE. [Suspect]
     Active Substance: CLOZAPINE
     Dosage: UNK
     Route: 065
     Dates: start: 201510, end: 201511
  6. CLOZAPINE. [Suspect]
     Active Substance: CLOZAPINE
     Dosage: 25 MG, 2X/DAY
     Route: 065

REACTIONS (3)
  - Tubulointerstitial nephritis [Unknown]
  - Lung infiltration [Recovering/Resolving]
  - Renal failure [Recovering/Resolving]
